FAERS Safety Report 15495467 (Version 1)
Quarter: 2018Q4

REPORT INFORMATION
  Report Type: Report from Study
  Country: IN (occurrence: IN)
  Receive Date: 20181013
  Receipt Date: 20181013
  Transmission Date: 20190205
  Serious: Yes (Other)
  Sender: FDA-Public Use
  Company Number: IN-ROCHE-2199212

PATIENT
  Age: 6 Year
  Sex: Female

DRUGS (3)
  1. RITUXIMAB. [Suspect]
     Active Substance: RITUXIMAB
     Indication: BURKITT^S LYMPHOMA STAGE IV
     Route: 065
  2. FILGRASTIM [Concomitant]
     Active Substance: FILGRASTIM
     Route: 065
  3. IVIG [Concomitant]
     Active Substance: HUMAN IMMUNOGLOBULIN G
     Dosage: 2 GM/KG
     Route: 065

REACTIONS (3)
  - Bone marrow failure [Unknown]
  - Viral sepsis [Unknown]
  - Parvovirus B19 infection [Unknown]

NARRATIVE: CASE EVENT DATE: 20151102
